FAERS Safety Report 15533936 (Version 1)
Quarter: 2018Q4

REPORT INFORMATION
  Report Type: Spontaneous
  Country: SG (occurrence: SG)
  Receive Date: 20181019
  Receipt Date: 20181019
  Transmission Date: 20190205
  Serious: Yes (Hospitalization)
  Sender: FDA-Public Use
  Company Number: SG-MYLANLABS-2018M1077167

PATIENT
  Age: 89 Year
  Sex: Male

DRUGS (2)
  1. FENTANYL. [Suspect]
     Active Substance: FENTANYL
     Indication: SPINAL ANAESTHESIA
     Dosage: ADMINISTERED AT L4/5 LEVEL
     Route: 065
  2. BUPIVACAINE. [Suspect]
     Active Substance: BUPIVACAINE
     Indication: SPINAL ANAESTHESIA
     Dosage: ADMINISTERED AT L4/5 LEVEL
     Route: 065

REACTIONS (3)
  - Unresponsive to stimuli [Unknown]
  - Sinus node dysfunction [Unknown]
  - Unmasking of previously unidentified disease [Unknown]
